FAERS Safety Report 12241212 (Version 1)
Quarter: 2016Q2

REPORT INFORMATION
  Report Type: Spontaneous
  Country: US (occurrence: None)
  Receive Date: 20160405
  Receipt Date: 20160405
  Transmission Date: 20160815
  Serious: No
  Sender: FDA-Public Use
  Company Number: None

PATIENT
  Age: 50 Year
  Sex: Male

DRUGS (2)
  1. XALKORI [Suspect]
     Active Substance: CRIZOTINIB
     Indication: NON-SMALL CELL LUNG CANCER
     Dosage: 250MG (500MG TOTAL DAILY) BID ORAL
     Route: 048
  2. ALECENSA [Concomitant]
     Active Substance: ALECTINIB HYDROCHLORIDE

REACTIONS (2)
  - Therapy cessation [None]
  - Adverse drug reaction [None]

NARRATIVE: CASE EVENT DATE: 20160404
